FAERS Safety Report 14540874 (Version 1)
Quarter: 2018Q1

REPORT INFORMATION
  Report Type: Spontaneous
  Country: DE (occurrence: DE)
  Receive Date: 20180216
  Receipt Date: 20180216
  Transmission Date: 20180509
  Serious: Yes (Hospitalization)
  Sender: FDA-Public Use
  Company Number: DE-OTSUKA-DJ20083028

PATIENT

DRUGS (1)
  1. ABILIFY [Suspect]
     Active Substance: ARIPIPRAZOLE
     Indication: SCHIZOPHRENIA
     Route: 065
     Dates: start: 20070119, end: 20080508

REACTIONS (3)
  - Hypersexuality [Recovered/Resolved]
  - Intervertebral disc protrusion [Recovered/Resolved]
  - Excessive masturbation [Recovered/Resolved]

NARRATIVE: CASE EVENT DATE: 200804
